FAERS Safety Report 23181317 (Version 1)
Quarter: 2023Q4

REPORT INFORMATION
  Report Type: Spontaneous
  Country: CA (occurrence: CA)
  Receive Date: 20231114
  Receipt Date: 20231114
  Transmission Date: 20240109
  Serious: Yes (Hospitalization, Other)
  Sender: FDA-Public Use
  Company Number: CA-MYLANLABS-2023M1120654

PATIENT
  Age: 82 Year

DRUGS (1)
  1. TRASTUZUMAB [Suspect]
     Active Substance: TRASTUZUMAB
     Indication: Breast cancer metastatic
     Dosage: 310 MILLIGRAM, Q3W
     Route: 042

REACTIONS (4)
  - Gastrointestinal haemorrhage [Unknown]
  - Oesophageal ulcer [Unknown]
  - Neoplasm [Unknown]
  - Off label use [Unknown]
